FAERS Safety Report 22155784 (Version 1)
Quarter: 2023Q1

REPORT INFORMATION
  Report Type: Report from Study
  Country: CR (occurrence: None)
  Receive Date: 20230330
  Receipt Date: 20230330
  Transmission Date: 20230417
  Serious: Yes (Hospitalization)
  Sender: FDA-Public Use
  Company Number: CR-ROCHE-3319220

PATIENT
  Age: 76 Year
  Sex: Female
  Weight: 48.5 kg

DRUGS (8)
  1. ATEZOLIZUMAB [Suspect]
     Active Substance: ATEZOLIZUMAB
     Indication: Lung squamous cell carcinoma metastatic
     Dosage: END DATE OF MOST RECENT DOSE OF STUDY DRUG PRIOR TO AE 15-MAR-2023 4:35 PM?START DATE OF MOST RECENT
     Route: 041
     Dates: start: 20220927
  2. ATEZOLIZUMAB [Suspect]
     Active Substance: ATEZOLIZUMAB
     Indication: Lung squamous cell carcinoma metastatic
     Dosage: START DATE OF MOST RECENT DOSE OF STUDY DRUG PRIOR TO AE 06-SEP-2022 3:35 PM
     Route: 058
     Dates: start: 20220727
  3. LEVOTHYROXINE [Concomitant]
     Active Substance: LEVOTHYROXINE
     Indication: Hypothyroidism
     Route: 048
     Dates: start: 2012
  4. MORPHINE [Concomitant]
     Active Substance: MORPHINE
     Indication: Pain
     Route: 048
     Dates: start: 20220315
  5. GABAPENTIN [Concomitant]
     Active Substance: GABAPENTIN
     Route: 048
     Dates: start: 20220315
  6. ACETAMINOPHEN [Concomitant]
     Active Substance: ACETAMINOPHEN
     Route: 048
     Dates: start: 20220515
  7. DIMENHYDRINATE [Concomitant]
     Active Substance: DIMENHYDRINATE
     Indication: Nausea
     Route: 048
     Dates: start: 20220315
  8. RUPATADINE [Concomitant]
     Active Substance: RUPATADINE
     Indication: Erythema
     Route: 048
     Dates: start: 20220921

REACTIONS (2)
  - Dysphagia [Recovering/Resolving]
  - Oesophageal achalasia [Not Recovered/Not Resolved]

NARRATIVE: CASE EVENT DATE: 20230303
